FAERS Safety Report 20437673 (Version 1)
Quarter: 2022Q1

REPORT INFORMATION
  Report Type: Spontaneous
  Country: US (occurrence: None)
  Receive Date: 20220204
  Receipt Date: 20220204
  Transmission Date: 20220423
  Serious: No
  Sender: FDA-Public Use
  Company Number: None

PATIENT
  Age: 58 Year
  Sex: Male
  Weight: 60 kg

DRUGS (1)
  1. SOTROVIMAB [Suspect]
     Active Substance: SOTROVIMAB
     Indication: SARS-CoV-2 test positive
     Dosage: OTHER FREQUENCY : ONCE;?
     Route: 042

REACTIONS (11)
  - Sepsis [None]
  - Hypotension [None]
  - Pyrexia [None]
  - Oxygen saturation decreased [None]
  - Pneumonia bacterial [None]
  - Pneumocystis jirovecii pneumonia [None]
  - Fungal infection [None]
  - Human rhinovirus test positive [None]
  - Enterovirus test positive [None]
  - Respiratory distress [None]
  - Tachypnoea [None]

NARRATIVE: CASE EVENT DATE: 20220131
